FAERS Safety Report 13233644 (Version 1)
Quarter: 2017Q1

REPORT INFORMATION
  Report Type: Spontaneous
  Country: US (occurrence: US)
  Receive Date: 20170214
  Receipt Date: 20170214
  Transmission Date: 20170428
  Serious: Yes (Hospitalization)
  Sender: FDA-Public Use
  Company Number: None

PATIENT

DRUGS (1)
  1. MESALAMINE. [Suspect]
     Active Substance: MESALAMINE

REACTIONS (5)
  - Hypotension [None]
  - Therapy cessation [None]
  - Chest pain [None]
  - Dyspnoea [None]
  - Troponin increased [None]

NARRATIVE: CASE EVENT DATE: 20150811
